FAERS Safety Report 9360181 (Version 1)
Quarter: 2013Q2

REPORT INFORMATION
  Report Type: Spontaneous
  Country: FR (occurrence: FR)
  Receive Date: 20130621
  Receipt Date: 20130621
  Transmission Date: 20140414
  Serious: Yes (Hospitalization)
  Sender: FDA-Public Use
  Company Number: FR-ASTRAZENECA-2013SE46436

PATIENT
  Age: 21934 Day
  Sex: Male

DRUGS (2)
  1. XEROQUEL [Suspect]
     Indication: DEPRESSION
     Route: 048
     Dates: start: 201303
  2. VALDOXAN [Concomitant]
     Indication: DEPRESSION
     Route: 048
     Dates: start: 201303

REACTIONS (2)
  - Pulmonary embolism [Unknown]
  - Chest pain [Unknown]
